FAERS Safety Report 5860283-8 (Version None)
Quarter: 2008Q3

REPORT INFORMATION
  Report Type: 
  Country: None (occurrence: None)
  Receive Date: 20080827
  Receipt Date: 20070815
  Transmission Date: 20090109
  Serious: No
  Sender: FDA-Public Use
  Company Number: US-ABBOTT-07P-163-0378293-00

PATIENT
  Age: 70 Year
  Sex: Male

DRUGS (2)
  1. NIASPAN [Suspect]
     Indication: BLOOD CHOLESTEROL
     Dosage: WHITE
  2. NIASPAN [Suspect]
     Dosage: ORANGE

REACTIONS (2)
  - DIZZINESS [None]
  - FATIGUE [None]
